FAERS Safety Report 18655039 (Version 1)
Quarter: 2020Q4

REPORT INFORMATION
  Report Type: Spontaneous
  Country: US (occurrence: US)
  Receive Date: 20201223
  Receipt Date: 20201223
  Transmission Date: 20210114
  Serious: Yes (Other)
  Sender: FDA-Public Use
  Company Number: None

PATIENT
  Age: 64 Year
  Sex: Male
  Weight: 82.1 kg

DRUGS (2)
  1. ABIRATERONE ACETATE/PREDNISONE [Concomitant]
     Dates: start: 20200201
  2. LUPRON DEPOT [Suspect]
     Active Substance: LEUPROLIDE ACETATE
     Indication: PROSTATE CANCER
     Route: 030
     Dates: start: 20201016

REACTIONS (3)
  - Injection site mass [None]
  - Injection site ulcer [None]
  - Injection site erythema [None]

NARRATIVE: CASE EVENT DATE: 20201016
